FAERS Safety Report 18870082 (Version 1)
Quarter: 2021Q1

REPORT INFORMATION
  Report Type: Spontaneous
  Country: IE (occurrence: IE)
  Receive Date: 20210209
  Receipt Date: 20210209
  Transmission Date: 20210420
  Serious: Yes (Other)
  Sender: FDA-Public Use
  Company Number: IE-009507513-2102IRL001496

PATIENT
  Age: 53 Year
  Sex: Female

DRUGS (1)
  1. PEMBROLIZUMAB. [Suspect]
     Active Substance: PEMBROLIZUMAB
     Indication: NON-SMALL CELL LUNG CANCER

REACTIONS (1)
  - Acrokeratosis paraneoplastica [Unknown]
